FAERS Safety Report 8509053-2 (Version None)
Quarter: 2012Q3

REPORT INFORMATION
  Report Type: 
  Country: None (occurrence: None)
  Receive Date: 20120713
  Receipt Date: 20120709
  Transmission Date: 20120928
  Serious: Yes (Other)
  Sender: FDA-Public Use
  Company Number: US-ABBOTT-12P-163-0954176-00

PATIENT
  Sex: Male
  Weight: 179.33 kg

DRUGS (7)
  1. ANDROGEL [Suspect]
     Indication: BLOOD TESTOSTERONE DECREASED
     Dosage: GEL
     Dates: start: 20120101
  2. LISINOPRIL [Concomitant]
     Indication: RENAL DISORDER
  3. LISINOPRIL [Concomitant]
     Indication: PROPHYLAXIS
  4. GLYBURIDE [Concomitant]
     Indication: DIABETES MELLITUS
  5. LEVOXYL [Concomitant]
     Indication: HORMONE REPLACEMENT THERAPY
  6. METFORMIN HYDROCHLORIDE [Concomitant]
     Indication: DIABETES MELLITUS
  7. ANDROGEL [Suspect]
     Indication: BLOOD TESTOSTERONE DECREASED
     Dosage: 8 PUMPS, GEL
     Dates: start: 20100901, end: 20120101

REACTIONS (5)
  - BLOOD TESTOSTERONE DECREASED [None]
  - DYSPHONIA [None]
  - THYROID CANCER [None]
  - MUSCULOSKELETAL PAIN [None]
  - AGGRESSION [None]
